FAERS Safety Report 4839163-2 (Version None)
Quarter: 2005Q4

REPORT INFORMATION
  Report Type: 
  Country: None (occurrence: None)
  Receive Date: 20051129
  Receipt Date: 20051118
  Transmission Date: 20060501
  Serious: Yes (Hospitalization)
  Sender: FDA-Public Use
  Company Number: DE-AMGEN-UK158690

PATIENT
  Age: 26 Year
  Sex: Female
  Weight: 44 kg

DRUGS (7)
  1. ARANESP [Suspect]
     Indication: RENAL FAILURE CHRONIC
     Route: 065
     Dates: start: 20040607
  2. VITAMIN D [Concomitant]
     Route: 065
  3. FOLIC ACID [Concomitant]
     Route: 065
  4. ALUMINUM HYDROXIDE GEL [Concomitant]
     Route: 065
  5. ANTIHYPERTENSIVES [Concomitant]
     Route: 065
  6. FERRLECIT TABLET [Concomitant]
     Route: 065
  7. VITAMIN D [Concomitant]

REACTIONS (1)
  - SHUNT OCCLUSION [None]
